FAERS Safety Report 21951051 (Version 1)
Quarter: 2023Q1

REPORT INFORMATION
  Report Type: Spontaneous
  Country: US (occurrence: None)
  Receive Date: 20230203
  Receipt Date: 20230203
  Transmission Date: 20230418
  Serious: No
  Sender: FDA-Public Use
  Company Number: None

PATIENT
  Age: 50 Year
  Sex: Female

DRUGS (1)
  1. COSENTYX [Suspect]
     Active Substance: SECUKINUMAB
     Indication: Psoriasis
     Dosage: OTHER FREQUENCY : 1X WK FOR 5 WKS;?
     Route: 058
     Dates: start: 202208

REACTIONS (3)
  - COVID-19 [None]
  - Pneumonia [None]
  - Intentional dose omission [None]
